FAERS Safety Report 9892069 (Version 7)
Quarter: 2015Q3

REPORT INFORMATION
  Report Type: Spontaneous
  Country: US (occurrence: US)
  Receive Date: 20140212
  Receipt Date: 20150911
  Transmission Date: 20151125
  Serious: Yes (Hospitalization, Other)
  Sender: FDA-Public Use
  Company Number: US-GLAXOSMITHKLINE-A1060515A

PATIENT
  Age: 44 Year
  Sex: Male

DRUGS (12)
  1. FLOLAN [Suspect]
     Active Substance: EPOPROSTENOL SODIUM
     Dosage: UNK
     Dates: start: 20130930
  2. FLOLAN [Suspect]
     Active Substance: EPOPROSTENOL SODIUM
     Dosage: UNK
     Dates: start: 20130930
  3. REVATIO [Concomitant]
     Active Substance: SILDENAFIL CITRATE
  4. ADEMPAS [Concomitant]
     Active Substance: RIOCIGUAT
  5. FLOLAN [Suspect]
     Active Substance: EPOPROSTENOL SODIUM
     Dosage: 41.07 NG/KG/MIN CONCENTRATION: 45,000 NG/MLVIAL STRENGTH: 1.5 MG.DOSE: PUMP RATE 92 ML/DAY, CO
     Route: 042
  6. SILDENAFIL. [Concomitant]
     Active Substance: SILDENAFIL
  7. FLOLAN [Suspect]
     Active Substance: EPOPROSTENOL SODIUM
     Dosage: UNK
     Dates: start: 20130930
  8. FLOLAN [Suspect]
     Active Substance: EPOPROSTENOL SODIUM
     Dosage: UNK
  9. COUMADIN [Concomitant]
     Active Substance: WARFARIN SODIUM
  10. FLOLAN [Suspect]
     Active Substance: EPOPROSTENOL SODIUM
     Indication: PULMONARY ARTERIAL HYPERTENSION
     Dosage: DOSE: 37.5 NG/KG/MINCONCENTRATION: 45,000 NG/MLVIAL STRENGTH: 1.5 MG.DOSE: 40 NG/KG/MINPUMP RAT[...]
     Route: 042
     Dates: start: 20130927
  11. FLOLAN [Suspect]
     Active Substance: EPOPROSTENOL SODIUM
     Dosage: 41.07 NG/KG/MIN CONCENTRATION: 45,000 NG/MLVIAL STRENGTH: 1.5 MG.DOSE: PUMP RATE 92 ML/DAY
     Route: 042
  12. OPSUMIT [Concomitant]
     Active Substance: MACITENTAN

REACTIONS (13)
  - Device breakage [Unknown]
  - Pain in jaw [Recovering/Resolving]
  - Rhinorrhoea [Not Recovered/Not Resolved]
  - Diarrhoea [Recovering/Resolving]
  - Enterocolitis [Unknown]
  - Central venous catheterisation [Unknown]
  - Productive cough [Not Recovered/Not Resolved]
  - Dental caries [Unknown]
  - Sputum discoloured [Not Recovered/Not Resolved]
  - Gastroenteritis viral [Not Recovered/Not Resolved]
  - Medical device complication [Unknown]
  - Headache [Unknown]
  - Ill-defined disorder [Not Recovered/Not Resolved]

NARRATIVE: CASE EVENT DATE: 20140717
